FAERS Safety Report 16753754 (Version 1)
Quarter: 2019Q3

REPORT INFORMATION
  Report Type: Spontaneous
  Country: US (occurrence: US)
  Receive Date: 20190829
  Receipt Date: 20190829
  Transmission Date: 20191005
  Serious: Yes (Other)
  Sender: FDA-Public Use
  Company Number: US-TEVA-2019-US-1100244

PATIENT
  Age: 39 Year
  Sex: Male

DRUGS (1)
  1. DICYCLOMINE HCL TEVA [Suspect]
     Active Substance: DICYCLOMINE HYDROCHLORIDE
     Indication: COELIAC DISEASE
     Dosage: 30 MILLIGRAM DAILY;
     Dates: start: 20190818

REACTIONS (4)
  - Fatigue [Unknown]
  - Coeliac disease [Unknown]
  - Headache [Unknown]
  - Mucous stools [Unknown]

NARRATIVE: CASE EVENT DATE: 20190822
